FAERS Safety Report 8950525 (Version 1)
Quarter: 2012Q4

REPORT INFORMATION
  Report Type: Spontaneous
  Country: CN (occurrence: None)
  Receive Date: 20121127
  Receipt Date: 20121127
  Transmission Date: 20130627
  Serious: Yes (Other)
  Sender: FDA-Public Use
  Company Number: CH12415714

PATIENT
  Age: 70 Year
  Sex: Male
  Weight: 80 kg

DRUGS (1)
  1. METFIN [Suspect]
     Indication: ACTINIC KERATOSIS
     Route: 061
     Dates: start: 20121114, end: 20121114

REACTIONS (2)
  - Erythema [None]
  - Blister [None]
